FAERS Safety Report 5898985-X (Version None)
Quarter: 2008Q3

REPORT INFORMATION
  Report Type: 
  Country: None (occurrence: None)
  Receive Date: 20080925
  Receipt Date: 20080911
  Transmission Date: 20090109
  Serious: Yes (Life-Threatening, Hospitalization)
  Sender: FDA-Public Use
  Company Number: GT-GENENTECH-268285

PATIENT
  Age: 68 Year
  Sex: Female

DRUGS (2)
  1. AVASTIN [Suspect]
     Indication: RENAL CANCER
     Dosage: 7.5 MG/KG, UNK
     Route: 042
     Dates: start: 20080810, end: 20080810
  2. PEGINTERFERON ALFA-2B [Concomitant]
     Indication: DRUG USE FOR UNKNOWN INDICATION
     Dosage: UNK
     Dates: start: 20080810, end: 20080810

REACTIONS (3)
  - HYPOVOLAEMIC SHOCK [None]
  - TUMOUR HAEMORRHAGE [None]
  - TUMOUR NECROSIS [None]
